FAERS Safety Report 17805906 (Version 1)
Quarter: 2020Q2

REPORT INFORMATION
  Report Type: Spontaneous
  Country: US (occurrence: US)
  Receive Date: 20200520
  Receipt Date: 20200520
  Transmission Date: 20200714
  Serious: Yes (Other)
  Sender: FDA-Public Use
  Company Number: US-SUN PHARMACEUTICAL INDUSTRIES LTD-2020R1-247160

PATIENT
  Age: 58 Year
  Sex: Male

DRUGS (1)
  1. TESTOSTERONE. [Suspect]
     Active Substance: TESTOSTERONE
     Indication: BLOOD TESTOSTERONE DECREASED
     Dosage: 0.8 MILLILITER (EVERY 2 WEEKS)
     Route: 030
     Dates: start: 20200129, end: 20200426

REACTIONS (3)
  - Blood testosterone decreased [Recovering/Resolving]
  - Erectile dysfunction [Recovering/Resolving]
  - Hypotonia [Recovering/Resolving]
